FAERS Safety Report 9307756 (Version 2)
Quarter: 2013Q2

REPORT INFORMATION
  Report Type: Spontaneous
  Country: US (occurrence: US)
  Receive Date: 20130524
  Receipt Date: 20130625
  Transmission Date: 20140414
  Serious: Yes (Hospitalization, Other)
  Sender: FDA-Public Use
  Company Number: US-BAYER-2013-064080

PATIENT
  Sex: Female

DRUGS (1)
  1. AVELOX [Suspect]
     Indication: PNEUMONIA STREPTOCOCCAL
     Dosage: 400 MG, UNK
     Dates: start: 201304

REACTIONS (7)
  - Infection [None]
  - Dyspnoea [None]
  - White blood cell count increased [None]
  - Drug ineffective [None]
  - Diarrhoea [None]
  - Abdominal pain upper [None]
  - Vision blurred [None]
